FAERS Safety Report 15786826 (Version 1)
Quarter: 2019Q1

REPORT INFORMATION
  Report Type: Spontaneous
  Country: US (occurrence: US)
  Receive Date: 20190103
  Receipt Date: 20190103
  Transmission Date: 20190417
  Serious: No
  Sender: FDA-Public Use
  Company Number: US-ASTRAZENECA-2018SF61587

PATIENT
  Sex: Female

DRUGS (5)
  1. TAGRISSO [Suspect]
     Active Substance: OSIMERTINIB
     Indication: LUNG NEOPLASM MALIGNANT
     Route: 048
     Dates: start: 201811
  2. VITAMIN D [Concomitant]
     Active Substance: CHOLECALCIFEROL
     Route: 048
  3. XANAX [Concomitant]
     Active Substance: ALPRAZOLAM
     Indication: DEPRESSION
     Dosage: 0.5MG AS REQUIRED
     Route: 048
  4. ZOLOFT [Concomitant]
     Active Substance: SERTRALINE HYDROCHLORIDE
     Indication: DEPRESSION
     Route: 048
     Dates: start: 201811
  5. CALCIUM [Concomitant]
     Active Substance: CALCIUM
     Indication: BONE ABSCESS
     Route: 048
     Dates: start: 201812

REACTIONS (12)
  - Dysgeusia [Unknown]
  - Muscular weakness [Unknown]
  - Weight decreased [Unknown]
  - Headache [Unknown]
  - Hypophagia [Unknown]
  - Depression [Unknown]
  - Tremor [Unknown]
  - Dry skin [Unknown]
  - Asthenia [Unknown]
  - Nausea [Unknown]
  - Fatigue [Unknown]
  - Gait disturbance [Unknown]
